FAERS Safety Report 9386216 (Version 1)
Quarter: 2013Q3

REPORT INFORMATION
  Report Type: Spontaneous
  Country: US (occurrence: US)
  Receive Date: 20130708
  Receipt Date: 20130708
  Transmission Date: 20140515
  Serious: Yes (Other)
  Sender: FDA-Public Use
  Company Number: US-AMGEN-USASP2013046748

PATIENT
  Age: 66 Year
  Sex: Female
  Weight: 113.38 kg

DRUGS (2)
  1. PROCRIT [Suspect]
     Indication: ANAEMIA
     Dosage: UNK UNK, QWK
     Route: 058
     Dates: start: 20130528
  2. WARFARIN [Concomitant]
     Dosage: UNK

REACTIONS (1)
  - International normalised ratio increased [Not Recovered/Not Resolved]
